FAERS Safety Report 5853938-2 (Version None)
Quarter: 2008Q3

REPORT INFORMATION
  Report Type: 
  Country: None (occurrence: None)
  Receive Date: 20080822
  Receipt Date: 20080814
  Transmission Date: 20090109
  Serious: Yes (Hospitalization, Other)
  Sender: FDA-Public Use
  Company Number: B0524369A

PATIENT
  Age: 57 Year
  Sex: Female
  Weight: 70 kg

DRUGS (9)
  1. ARIXTRA [Suspect]
     Route: 058
     Dates: start: 20080511, end: 20080522
  2. ARIXTRA [Suspect]
     Indication: THROMBOPHLEBITIS
     Route: 058
     Dates: start: 20080522, end: 20080604
  3. PREVISCAN [Suspect]
     Indication: THROMBOPHLEBITIS
     Route: 048
     Dates: start: 20080522, end: 20080604
  4. FOSINOPRIL SODIUM AND HYDROCHLOROTHIAZIDE [Concomitant]
     Route: 065
  5. LIPANTHYL [Concomitant]
     Route: 065
  6. ZANIDIP [Concomitant]
     Route: 065
  7. AMIKLIN [Concomitant]
     Route: 065
  8. FLAGYL [Concomitant]
     Route: 065
  9. NITROGLYCERIN [Concomitant]
     Route: 065

REACTIONS (13)
  - ABDOMINAL PAIN UPPER [None]
  - ANAEMIA [None]
  - BACK PAIN [None]
  - DRUG INEFFECTIVE [None]
  - DYSPNOEA [None]
  - FISTULA [None]
  - HAEMORRHAGE [None]
  - HYPERHIDROSIS [None]
  - OEDEMA PERIPHERAL [None]
  - PAIN IN EXTREMITY [None]
  - POST PROCEDURAL HAEMATOMA [None]
  - THROMBOPHLEBITIS [None]
  - VOMITING [None]
